FAERS Safety Report 8475572-0 (Version None)
Quarter: 2012Q2

REPORT INFORMATION
  Report Type: 
  Country: None (occurrence: None)
  Receive Date: 20120628
  Receipt Date: 20120619
  Transmission Date: 20120825
  Serious: Yes (Hospitalization)
  Sender: FDA-Public Use
  Company Number: JP-ABBOTT-12P-087-0936355-00

PATIENT
  Sex: Female
  Weight: 57 kg

DRUGS (14)
  1. MEDICON [Concomitant]
     Indication: INFLUENZA
     Route: 048
  2. CLARITHROMYCIN [Suspect]
     Indication: PRODUCT USED FOR UNKNOWN INDICATION
     Route: 048
     Dates: start: 20120117, end: 20120129
  3. INAVIR [Concomitant]
     Indication: INFLUENZA
     Dates: start: 20120117, end: 20120117
  4. ACETAMINOPHEN [Concomitant]
     Indication: INFLUENZA
     Dosage: PRN
  5. ANTIBIOTICS-RESISTANT LACTIC ACID BACTERIAE [Concomitant]
     Indication: UPPER RESPIRATORY TRACT INFLAMMATION
     Route: 048
     Dates: start: 20120131, end: 20120202
  6. APRICOT KERNAL WATER [Concomitant]
     Indication: INFLUENZA
     Route: 048
     Dates: start: 20120117, end: 20120201
  7. KAKKONTOU [Concomitant]
     Indication: INFLUENZA
     Route: 048
     Dates: start: 20120117, end: 20120121
  8. SENEGA SYRUP [Concomitant]
     Indication: INFLUENZA
     Route: 048
  9. MUCOSOLVAN [Concomitant]
     Indication: INFLUENZA
     Route: 048
  10. KEISHITO [Concomitant]
     Indication: UPPER RESPIRATORY TRACT INFLAMMATION
     Dates: start: 20120131, end: 20120202
  11. SAIBOKURO (HERBAL MEDICINE) [Concomitant]
     Indication: UPPER RESPIRATORY TRACT INFLAMMATION
     Dates: start: 20120123, end: 20120130
  12. AVELOX [Concomitant]
     Indication: UPPER RESPIRATORY TRACT INFLAMMATION
     Dates: start: 20120131, end: 20120202
  13. MAOTO [Concomitant]
     Indication: UPPER RESPIRATORY TRACT INFLAMMATION
     Dates: start: 20120131, end: 20120202
  14. BROCIN [Concomitant]
     Indication: INFLUENZA
     Route: 048
     Dates: start: 20120117, end: 20120201

REACTIONS (1)
  - DRUG-INDUCED LIVER INJURY [None]
